FAERS Safety Report 13189408 (Version 1)
Quarter: 2017Q1

REPORT INFORMATION
  Report Type: Spontaneous
  Country: US (occurrence: US)
  Receive Date: 20170204
  Receipt Date: 20170204
  Transmission Date: 20170428
  Serious: Yes (Death, Hospitalization)
  Sender: FDA-Public Use
  Company Number: None

PATIENT
  Age: 12 Year
  Sex: Male
  Weight: 87.7 kg

DRUGS (6)
  1. VINCRISTINE SULFATE. [Suspect]
     Active Substance: VINCRISTINE SULFATE
     Dates: end: 20170106
  2. MERCAPTOPURINE. [Suspect]
     Active Substance: MERCAPTOPURINE
     Dates: end: 20170105
  3. ONCASPAR [Suspect]
     Active Substance: PEGASPARGASE
     Dates: end: 20170106
  4. CYCLOPHOSPHAMIDE. [Suspect]
     Active Substance: CYCLOPHOSPHAMIDE
     Dates: end: 20161223
  5. CYTARABINE. [Suspect]
     Active Substance: CYTARABINE
     Dates: end: 20170102
  6. METHOTREXATE. [Suspect]
     Active Substance: METHOTREXATE
     Dates: end: 20161207

REACTIONS (24)
  - Hallucination [None]
  - Hyperammonaemia [None]
  - Catheter site haemorrhage [None]
  - Rectal haemorrhage [None]
  - Fluid overload [None]
  - Sepsis [None]
  - Staphylococcal bacteraemia [None]
  - Oedema peripheral [None]
  - Pancytopenia [None]
  - Hyperbilirubinaemia [None]
  - Tachypnoea [None]
  - Refusal of treatment by patient [None]
  - Bradycardia [None]
  - Multiple organ dysfunction syndrome [None]
  - Haemodialysis [None]
  - Pulse absent [None]
  - Hepatic failure [None]
  - Pyrexia [None]
  - Venoocclusive disease [None]
  - Metabolic acidosis [None]
  - General physical health deterioration [None]
  - Respiratory distress [None]
  - Lactic acidosis [None]
  - Myxoedema coma [None]

NARRATIVE: CASE EVENT DATE: 20170113
